FAERS Safety Report 23351514 (Version 1)
Quarter: 2023Q4

REPORT INFORMATION
  Report Type: Spontaneous
  Country: EG (occurrence: EG)
  Receive Date: 20231229
  Receipt Date: 20231229
  Transmission Date: 20240110
  Serious: Yes (Other)
  Sender: FDA-Public Use
  Company Number: EG-NOVOPROD-1154242

PATIENT
  Sex: Male
  Weight: 165 kg

DRUGS (4)
  1. ACTRAPID [Suspect]
     Active Substance: INSULIN HUMAN
     Indication: Type 1 diabetes mellitus
     Dosage: 22U  WITH EVERY MEAL
     Route: 058
     Dates: start: 2010
  2. ACTRAPID [Suspect]
     Active Substance: INSULIN HUMAN
     Dosage: 20-25U
     Route: 058
  3. AMARYL [Concomitant]
     Active Substance: GLIMEPIRIDE
     Indication: Type 1 diabetes mellitus
     Dosage: 1 TABLET PER DAY
  4. TIGO [BETAHISTINE HYDROCHLORIDE] [Concomitant]
     Indication: Type 1 diabetes mellitus
     Dosage: EVERY 24 HOURS
     Route: 058

REACTIONS (3)
  - Nail operation [Unknown]
  - Toe operation [Unknown]
  - Blood glucose increased [Unknown]
